FAERS Safety Report 7201481-0 (Version None)
Quarter: 2010Q4

REPORT INFORMATION
  Report Type: 
  Country: None (occurrence: None)
  Receive Date: 20101229
  Receipt Date: 20101227
  Transmission Date: 20110411
  Serious: Yes (Other)
  Sender: FDA-Public Use
  Company Number: ES-BRISTOL-MYERS SQUIBB COMPANY-15460926

PATIENT
  Sex: Male

DRUGS (2)
  1. HYDREA [Suspect]
  2. HYDROXOCOBALAMIN [Concomitant]

REACTIONS (2)
  - DRUG ADMINISTRATION ERROR [None]
  - TRANSAMINASES INCREASED [None]
